FAERS Safety Report 12327463 (Version 2)
Quarter: 2016Q2

REPORT INFORMATION
  Report Type: Spontaneous
  Country: US (occurrence: US)
  Receive Date: 20160503
  Receipt Date: 20160511
  Transmission Date: 20160815
  Serious: Yes (Death, Other)
  Sender: FDA-Public Use
  Company Number: US-AMGEN-USASP2016055482

PATIENT
  Age: 79 Year
  Sex: Male

DRUGS (2)
  1. PROCRIT [Suspect]
     Active Substance: ERYTHROPOIETIN
     Indication: PRODUCT USED FOR UNKNOWN INDICATION
     Dosage: UNK
     Route: 065
  2. DESFERAL [Concomitant]
     Active Substance: DEFEROXAMINE MESYLATE
     Indication: SERUM FERRITIN INCREASED
     Dosage: 1 G, UNK
     Dates: start: 20160316

REACTIONS (3)
  - Haemorrhage intracranial [Fatal]
  - Leukaemia [Fatal]
  - Fall [Fatal]
